FAERS Safety Report 9852496 (Version 1)
Quarter: 2014Q1

REPORT INFORMATION
  Report Type: Spontaneous
  Country: US (occurrence: None)
  Receive Date: 20140128
  Receipt Date: 20140128
  Transmission Date: 20141002
  Serious: Yes (Disabling)
  Sender: FDA-Public Use
  Company Number: None

PATIENT
  Age: 46 Year
  Sex: Female
  Weight: 104.33 kg

DRUGS (1)
  1. AMOXICILLIN AND CLAVULANATE [Suspect]
     Indication: SINUSITIS
     Dosage: TAKEN BY MOUTH
     Dates: start: 20131114, end: 20131119

REACTIONS (9)
  - Urticaria [None]
  - Arthropathy [None]
  - Impaired driving ability [None]
  - Hypoaesthesia [None]
  - Pain [None]
  - Carpal tunnel syndrome [None]
  - Fatigue [None]
  - Serum sickness [None]
  - Inflammatory marker increased [None]
